FAERS Safety Report 23436585 (Version 4)
Quarter: 2025Q1

REPORT INFORMATION
  Report Type: Spontaneous
  Country: CA (occurrence: CA)
  Receive Date: 20240124
  Receipt Date: 20250209
  Transmission Date: 20250409
  Serious: Yes (Death, Life-Threatening, Hospitalization, Disabling, Other)
  Sender: SANDOZ
  Company Number: CA-002147023-NVSC2024CA009104

PATIENT
  Age: 44 Year
  Sex: Female
  Weight: 97 kg

DRUGS (228)
  1. ACETAMINOPHEN [Suspect]
     Active Substance: ACETAMINOPHEN
     Indication: Product used for unknown indication
     Route: 065
  2. ACETAMINOPHEN [Suspect]
     Active Substance: ACETAMINOPHEN
     Route: 065
  3. ACETAMINOPHEN [Suspect]
     Active Substance: ACETAMINOPHEN
     Route: 065
  4. ADALIMUMAB [Suspect]
     Active Substance: ADALIMUMAB
     Indication: Rheumatoid arthritis
     Route: 058
  5. ACTEMRA [Suspect]
     Active Substance: TOCILIZUMAB
     Route: 048
  6. ACTEMRA [Suspect]
     Active Substance: TOCILIZUMAB
     Indication: Rheumatoid arthritis
     Route: 041
  7. ACTEMRA [Suspect]
     Active Substance: TOCILIZUMAB
     Route: 041
  8. ACTEMRA [Suspect]
     Active Substance: TOCILIZUMAB
     Route: 041
  9. ACTEMRA [Suspect]
     Active Substance: TOCILIZUMAB
     Route: 041
  10. ACTEMRA [Suspect]
     Active Substance: TOCILIZUMAB
     Route: 041
  11. ACTEMRA [Suspect]
     Active Substance: TOCILIZUMAB
     Route: 041
  12. ACTEMRA [Suspect]
     Active Substance: TOCILIZUMAB
     Route: 065
  13. ACTEMRA [Suspect]
     Active Substance: TOCILIZUMAB
     Route: 041
  14. ACTEMRA [Suspect]
     Active Substance: TOCILIZUMAB
     Route: 065
  15. ACTEMRA [Suspect]
     Active Substance: TOCILIZUMAB
     Route: 041
  16. ACTEMRA [Suspect]
     Active Substance: TOCILIZUMAB
     Route: 041
  17. ACTEMRA [Suspect]
     Active Substance: TOCILIZUMAB
     Route: 058
  18. ACTEMRA [Suspect]
     Active Substance: TOCILIZUMAB
     Route: 065
  19. ALENDRONATE SODIUM [Suspect]
     Active Substance: ALENDRONATE SODIUM
     Indication: Rheumatoid arthritis
     Route: 048
  20. ALENDRONIC ACID [Suspect]
     Active Substance: ALENDRONIC ACID
     Indication: Rheumatoid arthritis
     Route: 048
  21. AMINOSALICYLATE CALCIUM [Suspect]
     Active Substance: AMINOSALICYLATE CALCIUM
     Indication: Product used for unknown indication
     Route: 065
  22. AMINOSALICYLATE CALCIUM [Suspect]
     Active Substance: AMINOSALICYLATE CALCIUM
     Indication: Product used for unknown indication
     Route: 065
  23. ACETAMINOPHEN [Suspect]
     Active Substance: ACETAMINOPHEN
     Indication: Product used for unknown indication
     Route: 065
  24. DICLOFENAC SODIUM [Suspect]
     Active Substance: DICLOFENAC SODIUM
     Indication: Product used for unknown indication
     Route: 065
  25. PREDNISONE [Suspect]
     Active Substance: PREDNISONE
     Indication: Rheumatoid arthritis
     Route: 048
  26. PREDNISONE [Suspect]
     Active Substance: PREDNISONE
     Route: 065
  27. ARAVA [Suspect]
     Active Substance: LEFLUNOMIDE
     Dosage: 20 MG, QD
     Route: 048
  28. ARAVA [Suspect]
     Active Substance: LEFLUNOMIDE
     Indication: Rheumatoid arthritis
     Route: 048
  29. ASACOL [Suspect]
     Active Substance: MESALAMINE
     Indication: Crohn^s disease
     Route: 065
  30. ASACOL [Suspect]
     Active Substance: MESALAMINE
     Indication: Crohn^s disease
     Route: 065
  31. DIETARY SUPPLEMENT [Suspect]
     Active Substance: DIETARY SUPPLEMENT
     Indication: Product used for unknown indication
     Route: 016
  32. AZATHIOPRINE [Suspect]
     Active Substance: AZATHIOPRINE
     Indication: Rheumatoid arthritis
     Route: 058
  33. CALCIUM CARBONATE [Suspect]
     Active Substance: CALCIUM CARBONATE
     Indication: Product used for unknown indication
     Route: 065
  34. CALCIUM GLUBIONATE [Suspect]
     Active Substance: CALCIUM GLUBIONATE
     Indication: Product used for unknown indication
     Route: 065
  35. CALCIUM GLUCONATE [Suspect]
     Active Substance: CALCIUM GLUCONATE
     Indication: Product used for unknown indication
     Route: 065
  36. CALTRATE WITH VITAMIN D [Suspect]
     Active Substance: CALCIUM CARBONATE\CHOLECALCIFEROL
     Indication: Product used for unknown indication
     Route: 065
  37. CELEBREX [Suspect]
     Active Substance: CELECOXIB
     Indication: Product used for unknown indication
     Route: 048
  38. CELEBREX [Suspect]
     Active Substance: CELECOXIB
     Route: 065
  39. CHLORAPREP [Suspect]
     Active Substance: CHLORHEXIDINE GLUCONATE\ISOPROPYL ALCOHOL
     Indication: Rheumatoid arthritis
     Route: 065
  40. CHLORHEXIDINE [Suspect]
     Active Substance: CHLORHEXIDINE
     Indication: Product used for unknown indication
     Route: 065
  41. CHLORHEXIDINE GLUCONATE [Suspect]
     Active Substance: CHLORHEXIDINE GLUCONATE
     Indication: Product used for unknown indication
     Route: 048
  42. CHLORHEXIDINE GLUCONATE [Suspect]
     Active Substance: CHLORHEXIDINE GLUCONATE
     Indication: Rheumatoid arthritis
  43. CIMZIA [Suspect]
     Active Substance: CERTOLIZUMAB PEGOL
     Route: 058
  44. CIMZIA [Suspect]
     Active Substance: CERTOLIZUMAB PEGOL
     Indication: Rheumatoid arthritis
     Route: 058
  45. CORTISONE [Suspect]
     Active Substance: CORTISONE
     Route: 003
  46. CORTISONE [Suspect]
     Active Substance: CORTISONE
     Route: 003
  47. CORTISONE [Suspect]
     Active Substance: CORTISONE
     Route: 048
  48. CORTISONE [Suspect]
     Active Substance: CORTISONE
     Indication: Rheumatoid arthritis
     Route: 065
  49. CORTISONE [Suspect]
     Active Substance: CORTISONE
     Route: 065
  50. CORTISONE ACETATE [Suspect]
     Active Substance: CORTISONE ACETATE
     Indication: Rheumatoid arthritis
     Route: 061
  51. CORTISONE ACETATE [Suspect]
     Active Substance: CORTISONE ACETATE
     Route: 065
  52. DESOXIMETASONE [Suspect]
     Active Substance: DESOXIMETASONE
     Route: 048
  53. DESOXIMETASONE [Suspect]
     Active Substance: DESOXIMETASONE
     Route: 048
  54. DESOXIMETASONE [Suspect]
     Active Substance: DESOXIMETASONE
     Route: 048
  55. DESOXIMETASONE [Suspect]
     Active Substance: DESOXIMETASONE
     Route: 048
  56. DESOXIMETASONE [Suspect]
     Active Substance: DESOXIMETASONE
     Route: 061
  57. DESOXIMETASONE [Suspect]
     Active Substance: DESOXIMETASONE
     Route: 065
  58. DESOXIMETASONE [Suspect]
     Active Substance: DESOXIMETASONE
     Route: 065
  59. DESOXIMETASONE [Suspect]
     Active Substance: DESOXIMETASONE
     Route: 065
  60. DESOXIMETASONE [Suspect]
     Active Substance: DESOXIMETASONE
     Route: 065
  61. DESOXIMETASONE [Suspect]
     Active Substance: DESOXIMETASONE
     Indication: Rheumatoid arthritis
     Route: 003
  62. DESOXIMETASONE [Suspect]
     Active Substance: DESOXIMETASONE
     Route: 003
  63. DESOXIMETASONE [Suspect]
     Active Substance: DESOXIMETASONE
     Route: 003
  64. DESOXIMETASONE [Suspect]
     Active Substance: DESOXIMETASONE
     Route: 003
  65. DESOXIMETASONE [Suspect]
     Active Substance: DESOXIMETASONE
     Route: 016
  66. DESOXIMETASONE [Suspect]
     Active Substance: DESOXIMETASONE
     Route: 016
  67. DESOXIMETASONE [Suspect]
     Active Substance: DESOXIMETASONE
     Route: 048
  68. DESOXIMETASONE [Suspect]
     Active Substance: DESOXIMETASONE
     Route: 048
  69. DESOXIMETASONE [Suspect]
     Active Substance: DESOXIMETASONE
     Route: 048
  70. DESOXIMETASONE [Suspect]
     Active Substance: DESOXIMETASONE
     Route: 058
  71. DESOXIMETASONE [Suspect]
     Active Substance: DESOXIMETASONE
     Route: 058
  72. DESOXIMETASONE [Suspect]
     Active Substance: DESOXIMETASONE
     Route: 065
  73. DESOXIMETASONE [Suspect]
     Active Substance: DESOXIMETASONE
     Route: 065
  74. DESOXIMETASONE [Suspect]
     Active Substance: DESOXIMETASONE
     Route: 065
  75. DESOXIMETASONE [Suspect]
     Active Substance: DESOXIMETASONE
     Route: 065
  76. DESOXIMETASONE [Suspect]
     Active Substance: DESOXIMETASONE
     Route: 065
  77. DESOXIMETASONE [Suspect]
     Active Substance: DESOXIMETASONE
     Route: 065
  78. DESOXIMETASONE [Suspect]
     Active Substance: DESOXIMETASONE
     Route: 067
  79. DESOXIMETASONE [Suspect]
     Active Substance: DESOXIMETASONE
     Route: 067
  80. DESOXIMETASONE [Suspect]
     Active Substance: DESOXIMETASONE
     Route: 067
  81. DICLOFENAC [Suspect]
     Active Substance: DICLOFENAC
     Route: 047
  82. DICLOFENAC [Suspect]
     Active Substance: DICLOFENAC
     Indication: Product used for unknown indication
     Route: 065
  83. DICLOFENAC POTASSIUM [Suspect]
     Active Substance: DICLOFENAC POTASSIUM
     Indication: Rheumatoid arthritis
     Route: 065
  84. DICLOFENAC SODIUM [Suspect]
     Active Substance: DICLOFENAC SODIUM
     Route: 065
  85. DICLOFENAC SODIUM [Suspect]
     Active Substance: DICLOFENAC SODIUM
     Route: 047
  86. DICLOFENAC SODIUM [Suspect]
     Active Substance: DICLOFENAC SODIUM
     Route: 058
  87. DICLOFENAC SODIUM [Suspect]
     Active Substance: DICLOFENAC SODIUM
     Indication: Rheumatoid arthritis
     Route: 065
  88. DICLOFENAC SODIUM [Suspect]
     Active Substance: DICLOFENAC SODIUM
     Route: 065
  89. DICLOFENAC SODIUM [Suspect]
     Active Substance: DICLOFENAC SODIUM
     Route: 065
  90. DEXTROMETHORPHAN [Suspect]
     Active Substance: DEXTROMETHORPHAN
     Indication: Product used for unknown indication
     Route: 065
  91. DEXTROMETHORPHAN [Suspect]
     Active Substance: DEXTROMETHORPHAN
     Route: 065
  92. ERELZI [Suspect]
     Active Substance: ETANERCEPT-SZZS
     Route: 058
  93. ERELZI [Suspect]
     Active Substance: ETANERCEPT-SZZS
     Indication: Rheumatoid arthritis
     Route: 065
  94. ENBREL [Suspect]
     Active Substance: ETANERCEPT
     Dosage: 20 MG, QD
     Route: 058
  95. ENBREL [Suspect]
     Active Substance: ETANERCEPT
     Route: 058
  96. ENBREL [Suspect]
     Active Substance: ETANERCEPT
     Route: 065
  97. ENBREL [Suspect]
     Active Substance: ETANERCEPT
     Route: 058
  98. ENBREL [Suspect]
     Active Substance: ETANERCEPT
     Route: 058
  99. ENBREL [Suspect]
     Active Substance: ETANERCEPT
     Route: 065
  100. ENBREL [Suspect]
     Active Substance: ETANERCEPT
     Route: 058
  101. ENBREL [Suspect]
     Active Substance: ETANERCEPT
     Indication: Rheumatoid arthritis
     Route: 058
  102. ENBREL [Suspect]
     Active Substance: ETANERCEPT
     Route: 065
  103. ERGOCALCIFEROL [Suspect]
     Active Substance: ERGOCALCIFEROL
     Indication: Rheumatoid arthritis
     Route: 065
  104. FOLIC ACID [Suspect]
     Active Substance: FOLIC ACID
     Indication: Product used for unknown indication
     Route: 065
  105. FOLIC ACID [Suspect]
     Active Substance: FOLIC ACID
     Indication: Rheumatoid arthritis
     Route: 065
  106. FOLIC ACID [Suspect]
     Active Substance: FOLIC ACID
     Route: 065
  107. FOLIC ACID [Suspect]
     Active Substance: FOLIC ACID
     Route: 065
  108. FOLIC ACID [Suspect]
     Active Substance: FOLIC ACID
     Route: 016
  109. FOSAMAX [Suspect]
     Active Substance: ALENDRONATE SODIUM
     Route: 065
  110. FOSAMAX [Suspect]
     Active Substance: ALENDRONATE SODIUM
     Indication: Rheumatoid arthritis
     Route: 048
  111. FOSAMAX [Suspect]
     Active Substance: ALENDRONATE SODIUM
     Indication: Product used for unknown indication
     Route: 065
  112. HUMIRA [Suspect]
     Active Substance: ADALIMUMAB
     Indication: Rheumatoid arthritis
     Route: 058
  113. HUMIRA [Suspect]
     Active Substance: ADALIMUMAB
     Indication: Product used for unknown indication
     Route: 065
  114. HYDROCORTISONE BUTYRATE [Suspect]
     Active Substance: HYDROCORTISONE BUTYRATE
     Indication: Rheumatoid arthritis
     Route: 065
  115. HYDROXYCHLOROQUINE [Suspect]
     Active Substance: HYDROXYCHLOROQUINE
     Route: 048
  116. HYDROXYCHLOROQUINE [Suspect]
     Active Substance: HYDROXYCHLOROQUINE
     Indication: Rheumatoid arthritis
     Dosage: 400 MG, QD
     Route: 048
  117. HYDROXYCHLOROQUINE [Suspect]
     Active Substance: HYDROXYCHLOROQUINE
     Indication: Rheumatoid arthritis
     Dosage: 400 MG, QD
     Route: 065
  118. HYDROXYCHLOROQUINE [Suspect]
     Active Substance: HYDROXYCHLOROQUINE
     Route: 048
  119. HYDROXYCHLOROQUINE [Suspect]
     Active Substance: HYDROXYCHLOROQUINE
     Route: 048
  120. HYDROXYCHLOROQUINE [Suspect]
     Active Substance: HYDROXYCHLOROQUINE
     Dosage: UNK, QD
     Route: 065
  121. HYDROXYCHLOROQUINE [Suspect]
     Active Substance: HYDROXYCHLOROQUINE
     Route: 005
  122. HYDROXYCHLOROQUINE [Suspect]
     Active Substance: HYDROXYCHLOROQUINE
     Route: 016
  123. HYDROXYCHLOROQUINE [Suspect]
     Active Substance: HYDROXYCHLOROQUINE
     Route: 048
  124. HYDROXYCHLOROQUINE [Suspect]
     Active Substance: HYDROXYCHLOROQUINE
     Route: 048
  125. HYDROXYCHLOROQUINE [Suspect]
     Active Substance: HYDROXYCHLOROQUINE
     Route: 048
  126. HYDROXYCHLOROQUINE [Suspect]
     Active Substance: HYDROXYCHLOROQUINE
     Indication: Systemic lupus erythematosus
     Route: 065
  127. HYDROXYCHLOROQUINE [Suspect]
     Active Substance: HYDROXYCHLOROQUINE
     Route: 065
  128. HYDROXYCHLOROQUINE [Suspect]
     Active Substance: HYDROXYCHLOROQUINE
     Route: 065
  129. HYDROXYCHLOROQUINE [Suspect]
     Active Substance: HYDROXYCHLOROQUINE
     Route: 065
  130. HYDROXYCHLOROQUINE [Suspect]
     Active Substance: HYDROXYCHLOROQUINE
     Route: 065
  131. HYDROXYCHLOROQUINE [Suspect]
     Active Substance: HYDROXYCHLOROQUINE
     Route: 065
  132. HYDROXYCHLOROQUINE SULFATE [Suspect]
     Active Substance: HYDROXYCHLOROQUINE SULFATE
     Dosage: 400 MG, QD
     Route: 048
  133. HYDROXYCHLOROQUINE SULFATE [Suspect]
     Active Substance: HYDROXYCHLOROQUINE SULFATE
     Route: 048
  134. HYDROXYCHLOROQUINE SULFATE [Suspect]
     Active Substance: HYDROXYCHLOROQUINE SULFATE
     Indication: Rheumatoid arthritis
     Route: 065
  135. INFLECTRA [Suspect]
     Active Substance: INFLIXIMAB-DYYB
     Indication: Product used for unknown indication
     Route: 065
  136. INFLIXIMAB [Suspect]
     Active Substance: INFLIXIMAB
     Indication: Product used for unknown indication
     Route: 065
  137. INFLIXIMAB [Suspect]
     Active Substance: INFLIXIMAB
     Indication: Rheumatoid arthritis
     Route: 065
  138. INFLIXIMAB [Suspect]
     Active Substance: INFLIXIMAB
     Route: 042
  139. LEFLUNOMIDE [Suspect]
     Active Substance: LEFLUNOMIDE
     Indication: Product used for unknown indication
     Route: 048
  140. LEFLUNOMIDE [Suspect]
     Active Substance: LEFLUNOMIDE
     Indication: Rheumatoid arthritis
     Route: 048
  141. LEFLUNOMIDE [Suspect]
     Active Substance: LEFLUNOMIDE
     Route: 065
  142. METHOTREXATE [Suspect]
     Active Substance: METHOTREXATE
     Route: 048
  143. METHOTREXATE [Suspect]
     Active Substance: METHOTREXATE
     Route: 065
  144. METHOTREXATE [Suspect]
     Active Substance: METHOTREXATE
     Dosage: 20 MG, QD
     Route: 048
  145. METHOTREXATE [Suspect]
     Active Substance: METHOTREXATE
     Indication: Rheumatoid arthritis
     Route: 048
  146. METHOTREXATE [Suspect]
     Active Substance: METHOTREXATE
     Route: 048
  147. METHOTREXATE [Suspect]
     Active Substance: METHOTREXATE
     Dosage: 25 MG, QD
     Route: 048
  148. METHOTREXATE [Suspect]
     Active Substance: METHOTREXATE
     Indication: Product used for unknown indication
     Route: 048
  149. METHOTREXATE [Suspect]
     Active Substance: METHOTREXATE
     Route: 058
  150. METHOTREXATE [Suspect]
     Active Substance: METHOTREXATE
     Route: 065
  151. METHOTREXATE [Suspect]
     Active Substance: METHOTREXATE
     Route: 013
  152. METHOTREXATE [Suspect]
     Active Substance: METHOTREXATE
     Route: 016
  153. METHOTREXATE [Suspect]
     Active Substance: METHOTREXATE
     Route: 037
  154. METHOTREXATE [Suspect]
     Active Substance: METHOTREXATE
     Route: 052
  155. MORPHINE SULFATE [Suspect]
     Active Substance: MORPHINE SULFATE
     Indication: Rheumatoid arthritis
     Route: 048
  156. OXYCODONE [Suspect]
     Active Substance: OXYCODONE
     Indication: Product used for unknown indication
     Route: 065
  157. OXYCODONE [Suspect]
     Active Substance: OXYCODONE
     Route: 065
  158. OXYCODONE [Suspect]
     Active Substance: OXYCODONE
     Route: 065
  159. ORENCIA [Suspect]
     Active Substance: ABATACEPT
     Route: 058
  160. ORENCIA [Suspect]
     Active Substance: ABATACEPT
     Route: 041
  161. ORENCIA [Suspect]
     Active Substance: ABATACEPT
     Indication: Rheumatoid arthritis
     Route: 058
  162. ORENCIA [Suspect]
     Active Substance: ABATACEPT
     Route: 058
  163. ORENCIA [Suspect]
     Active Substance: ABATACEPT
     Indication: Product used for unknown indication
     Dosage: 17 MG, QD
     Route: 058
  164. ORENCIA [Suspect]
     Active Substance: ABATACEPT
     Dosage: 17 MG, QD
     Route: 058
  165. ORENCIA [Suspect]
     Active Substance: ABATACEPT
     Dosage: 17 MG, QD
     Route: 058
  166. ORENCIA [Suspect]
     Active Substance: ABATACEPT
     Dosage: 17 MG, QD
     Route: 058
  167. ORENCIA [Suspect]
     Active Substance: ABATACEPT
     Route: 058
  168. ORENCIA [Suspect]
     Active Substance: ABATACEPT
     Route: 058
  169. ORENCIA [Suspect]
     Active Substance: ABATACEPT
     Route: 058
  170. ORENCIA [Suspect]
     Active Substance: ABATACEPT
     Route: 041
  171. ORENCIA [Suspect]
     Active Substance: ABATACEPT
     Route: 041
  172. ORENCIA [Suspect]
     Active Substance: ABATACEPT
     Route: 041
  173. ORENCIA [Suspect]
     Active Substance: ABATACEPT
     Route: 041
  174. ORENCIA [Suspect]
     Active Substance: ABATACEPT
     Route: 065
  175. OXYCODONE AND ACETAMINOPHEN [Suspect]
     Active Substance: ACETAMINOPHEN\OXYCODONE HYDROCHLORIDE
     Indication: Product used for unknown indication
     Route: 065
  176. OXYCODONE HYDROCHLORIDE [Suspect]
     Active Substance: OXYCODONE HYDROCHLORIDE
     Indication: Product used for unknown indication
     Route: 065
  177. OXYCODONE TEREPHTHALATE [Suspect]
     Active Substance: OXYCODONE TEREPHTHALATE
     Indication: Product used for unknown indication
     Route: 065
  178. PANTOPRAZOLE [Suspect]
     Active Substance: PANTOPRAZOLE
     Indication: Product used for unknown indication
     Route: 065
  179. PERIOGARD [Suspect]
     Active Substance: CHLORHEXIDINE GLUCONATE
     Indication: Product used for unknown indication
     Route: 065
  180. PERIOGARD [Suspect]
     Active Substance: CHLORHEXIDINE GLUCONATE
     Route: 065
  181. PHTHALYLSULFATHIAZOLE [Suspect]
     Active Substance: PHTHALYLSULFATHIAZOLE
     Route: 048
  182. PHTHALYLSULFATHIAZOLE [Suspect]
     Active Substance: PHTHALYLSULFATHIAZOLE
     Indication: Rheumatoid arthritis
     Route: 048
  183. PREDNISONE [Suspect]
     Active Substance: PREDNISONE
     Route: 048
  184. PREDNISONE [Suspect]
     Active Substance: PREDNISONE
     Route: 048
  185. PREDNISONE [Suspect]
     Active Substance: PREDNISONE
     Indication: Rheumatoid arthritis
     Route: 048
  186. PREDNISONE [Suspect]
     Active Substance: PREDNISONE
     Route: 065
  187. PREVACID [Suspect]
     Active Substance: LANSOPRAZOLE
     Route: 065
  188. PREVACID [Suspect]
     Active Substance: LANSOPRAZOLE
     Indication: Product used for unknown indication
     Route: 065
  189. RAMIPRIL [Suspect]
     Active Substance: RAMIPRIL
     Indication: Product used for unknown indication
     Route: 065
  190. CETIRIZINE HYDROCHLORIDE [Suspect]
     Active Substance: CETIRIZINE HYDROCHLORIDE
     Indication: Rheumatoid arthritis
     Route: 041
  191. CETIRIZINE HYDROCHLORIDE [Suspect]
     Active Substance: CETIRIZINE HYDROCHLORIDE
     Route: 048
  192. CETIRIZINE HYDROCHLORIDE [Suspect]
     Active Substance: CETIRIZINE HYDROCHLORIDE
     Route: 065
  193. CETIRIZINE HYDROCHLORIDE [Suspect]
     Active Substance: CETIRIZINE HYDROCHLORIDE
     Indication: Product used for unknown indication
     Route: 016
  194. CETIRIZINE HYDROCHLORIDE [Suspect]
     Active Substance: CETIRIZINE HYDROCHLORIDE
     Route: 048
  195. CETIRIZINE HYDROCHLORIDE [Suspect]
     Active Substance: CETIRIZINE HYDROCHLORIDE
     Route: 048
  196. CETIRIZINE HYDROCHLORIDE [Suspect]
     Active Substance: CETIRIZINE HYDROCHLORIDE
     Route: 065
  197. SULFASALAZINE [Suspect]
     Active Substance: SULFASALAZINE
     Dosage: 1 G, BID
     Route: 065
  198. SULFASALAZINE [Suspect]
     Active Substance: SULFASALAZINE
     Indication: Product used for unknown indication
     Dosage: 1000 G, BID
     Route: 065
  199. SULFASALAZINE [Suspect]
     Active Substance: SULFASALAZINE
     Route: 065
  200. SECUKINUMAB [Suspect]
     Active Substance: SECUKINUMAB
     Indication: Rheumatoid arthritis
     Route: 065
  201. SECUKINUMAB [Suspect]
     Active Substance: SECUKINUMAB
     Indication: Product used for unknown indication
  202. SIMPONI [Suspect]
     Active Substance: GOLIMUMAB
     Indication: Product used for unknown indication
     Route: 065
  203. SULFASALAZINE [Suspect]
     Active Substance: SULFASALAZINE
     Indication: Product used for unknown indication
     Route: 065
  204. XELJANZ [Suspect]
     Active Substance: TOFACITINIB CITRATE
     Indication: Product used for unknown indication
     Route: 065
  205. ZESTRIL [Suspect]
     Active Substance: LISINOPRIL
     Indication: Product used for unknown indication
     Route: 048
  206. ZESTRIL [Suspect]
     Active Substance: LISINOPRIL
     Route: 065
  207. ACETAMINOPHEN AND CODEINE [Concomitant]
     Active Substance: ACETAMINOPHEN\CODEINE PHOSPHATE
     Indication: Product used for unknown indication
     Route: 065
  208. ACETAMINOPHEN [Concomitant]
     Active Substance: ACETAMINOPHEN
     Indication: Product used for unknown indication
     Route: 065
  209. ATIVAN [Concomitant]
     Active Substance: LORAZEPAM
     Indication: Product used for unknown indication
     Route: 065
  210. CAFFEINE [Concomitant]
     Active Substance: CAFFEINE
     Indication: Product used for unknown indication
     Route: 065
  211. CETIRIZINE [Concomitant]
     Active Substance: CETIRIZINE HYDROCHLORIDE
     Indication: Rheumatoid arthritis
     Route: 065
  212. CODEINE [Concomitant]
     Active Substance: CODEINE
     Indication: Product used for unknown indication
     Route: 065
  213. CHOLECALCIFEROL [Concomitant]
     Active Substance: CHOLECALCIFEROL
     Indication: Rheumatoid arthritis
     Route: 065
  214. DESOGESTREL [Concomitant]
     Active Substance: DESOGESTREL
     Indication: Product used for unknown indication
     Route: 065
  215. GLUCOSAMINE [Concomitant]
     Active Substance: GLUCOSAMINE
     Indication: Rheumatoid arthritis
     Route: 048
  216. IBUPROFEN [Concomitant]
     Active Substance: IBUPROFEN
     Indication: Product used for unknown indication
     Route: 065
  217. LORAZEPAM [Concomitant]
     Active Substance: LORAZEPAM
     Indication: Product used for unknown indication
     Route: 065
  218. LORAZEPAM [Concomitant]
     Active Substance: LORAZEPAM
     Route: 065
  219. MARVELON [Concomitant]
     Active Substance: DESOGESTREL\ETHINYL ESTRADIOL
     Indication: Product used for unknown indication
     Route: 065
  220. PANTOPRAZOLE SODIUM [Concomitant]
     Active Substance: PANTOPRAZOLE SODIUM
     Route: 065
  221. PANTOPRAZOLE SODIUM [Concomitant]
     Active Substance: PANTOPRAZOLE SODIUM
     Route: 065
  222. PANTOPRAZOLE SODIUM [Concomitant]
     Active Substance: PANTOPRAZOLE SODIUM
     Route: 065
  223. PANTOPRAZOLE SODIUM [Concomitant]
     Active Substance: PANTOPRAZOLE SODIUM
     Indication: Product used for unknown indication
     Route: 065
  224. PANTOPRAZOLE SODIUM ANHYDROUS [Concomitant]
     Active Substance: PANTOPRAZOLE SODIUM ANHYDROUS
     Indication: Product used for unknown indication
     Route: 048
  225. TRIMETHOPRIM [Concomitant]
     Active Substance: TRIMETHOPRIM
     Indication: Product used for unknown indication
     Route: 065
  226. TYLENOL WITH CODEINE [Concomitant]
     Active Substance: ACETAMINOPHEN\CODEINE PHOSPHATE
     Indication: Product used for unknown indication
     Route: 065
  227. VITAMIN C [Concomitant]
     Active Substance: ASCORBIC ACID
     Indication: Product used for unknown indication
     Route: 065
  228. VITAMIN D3 [Concomitant]
     Active Substance: CHOLECALCIFEROL
     Indication: Product used for unknown indication
     Route: 065

REACTIONS (118)
  - Gait inability [Fatal]
  - Autoimmune disorder [Fatal]
  - Blood cholesterol increased [Fatal]
  - Bursitis [Fatal]
  - C-reactive protein abnormal [Fatal]
  - Chest pain [Fatal]
  - Condition aggravated [Fatal]
  - Confusional state [Fatal]
  - Contusion [Fatal]
  - Deep vein thrombosis postoperative [Fatal]
  - Diarrhoea [Fatal]
  - Abdominal pain [Fatal]
  - Dizziness [Fatal]
  - Dry mouth [Fatal]
  - Duodenal ulcer perforation [Fatal]
  - Dyspnoea [Fatal]
  - Facet joint syndrome [Fatal]
  - Fatigue [Fatal]
  - Fibromyalgia [Fatal]
  - Folliculitis [Fatal]
  - Drug intolerance [Fatal]
  - Abdominal pain upper [Fatal]
  - Adverse drug reaction [Fatal]
  - Anxiety [Fatal]
  - Arthralgia [Fatal]
  - Arthropathy [Fatal]
  - Asthenia [Fatal]
  - Asthma [Fatal]
  - Musculoskeletal stiffness [Fatal]
  - Joint range of motion decreased [Fatal]
  - Road traffic accident [Fatal]
  - Muscle spasms [Fatal]
  - Lower respiratory tract infection [Fatal]
  - Mobility decreased [Fatal]
  - Psoriatic arthropathy [Fatal]
  - Osteoarthritis [Fatal]
  - Liver disorder [Fatal]
  - Urticaria [Fatal]
  - Lower limb fracture [Fatal]
  - Joint swelling [Fatal]
  - Lip dry [Fatal]
  - Lung disorder [Fatal]
  - Malaise [Fatal]
  - Muscle injury [Fatal]
  - Musculoskeletal pain [Fatal]
  - Night sweats [Fatal]
  - Obesity [Fatal]
  - Oedema [Fatal]
  - Oedema peripheral [Fatal]
  - Paraesthesia [Fatal]
  - Peripheral swelling [Fatal]
  - Peripheral venous disease [Fatal]
  - Pregnancy [Fatal]
  - Pruritus [Fatal]
  - Pyrexia [Fatal]
  - Rheumatic fever [Fatal]
  - Rheumatoid arthritis [Fatal]
  - Rheumatoid factor positive [Fatal]
  - Sinusitis [Fatal]
  - Sleep disorder [Fatal]
  - Sleep disorder due to general medical condition, insomnia type [Fatal]
  - Stomatitis [Fatal]
  - Swelling [Fatal]
  - Synovitis [Fatal]
  - Swollen joint count increased [Fatal]
  - Systemic lupus erythematosus [Fatal]
  - Type 2 diabetes mellitus [Fatal]
  - Vomiting [Fatal]
  - Weight increased [Fatal]
  - Wheezing [Fatal]
  - Rash [Fatal]
  - Wound [Fatal]
  - Alopecia [Fatal]
  - Anti-cyclic citrullinated peptide antibody positive [Fatal]
  - Blister [Fatal]
  - Decreased appetite [Fatal]
  - Discomfort [Fatal]
  - Drug hypersensitivity [Fatal]
  - Gastrointestinal disorder [Fatal]
  - General physical health deterioration [Fatal]
  - Glossodynia [Fatal]
  - Hand deformity [Fatal]
  - Headache [Fatal]
  - Helicobacter infection [Fatal]
  - Hepatic enzyme increased [Fatal]
  - Hypersensitivity [Fatal]
  - Hypertension [Fatal]
  - Hypoaesthesia [Fatal]
  - Ill-defined disorder [Fatal]
  - Impaired healing [Fatal]
  - Infection [Fatal]
  - Inflammation [Fatal]
  - Infusion related reaction [Fatal]
  - Injury [Fatal]
  - Insomnia [Fatal]
  - Irritable bowel syndrome [Fatal]
  - Liver injury [Fatal]
  - Nasopharyngitis [Fatal]
  - Pemphigus [Fatal]
  - Pain [Fatal]
  - Pericarditis [Fatal]
  - Sciatica [Fatal]
  - Hepatic cirrhosis [Fatal]
  - Joint dislocation [Fatal]
  - Off label use [Fatal]
  - Prescribed overdose [Fatal]
  - Contraindicated product administered [Fatal]
  - Product use in unapproved indication [Fatal]
  - Medication error [Fatal]
  - Product use issue [Fatal]
  - Intentional product use issue [Fatal]
  - Therapy non-responder [Fatal]
  - Treatment failure [Fatal]
  - Maternal exposure timing unspecified [Fatal]
  - Maternal exposure during pregnancy [Fatal]
  - Exposure during pregnancy [Fatal]
  - Therapeutic product effect decreased [Fatal]
  - Drug ineffective [Fatal]
